FAERS Safety Report 11939435 (Version 1)
Quarter: 2016Q1

REPORT INFORMATION
  Report Type: Report from Study
  Country: TW (occurrence: TW)
  Receive Date: 20160122
  Receipt Date: 20160122
  Transmission Date: 20160526
  Serious: Yes (Death, Hospitalization)
  Sender: FDA-Public Use
  Company Number: TW-JNJFOC-20160116444

PATIENT
  Age: 77 Year
  Sex: Female

DRUGS (1)
  1. XARELTO [Suspect]
     Active Substance: RIVAROXABAN
     Indication: CEREBROVASCULAR ACCIDENT PROPHYLAXIS
     Route: 048

REACTIONS (7)
  - Shock [Fatal]
  - Thrombosis [Unknown]
  - Atrial fibrillation [Unknown]
  - Seizure [Unknown]
  - Cerebral haemorrhage [Not Recovered/Not Resolved]
  - Pneumonia [Unknown]
  - Gastrointestinal haemorrhage [Unknown]
